FAERS Safety Report 5627128-2 (Version None)
Quarter: 2008Q1

REPORT INFORMATION
  Report Type: 
  Country: None (occurrence: None)
  Receive Date: 20080212
  Receipt Date: 20080212
  Transmission Date: 20080703
  Serious: Yes (Disabling)
  Sender: FDA-Public Use
  Company Number: None

PATIENT
  Age: 57 Year
  Sex: Male
  Weight: 120.2032 kg

DRUGS (2)
  1. DILTIAZEM [Suspect]
     Indication: ATRIAL FIBRILLATION
     Dosage: TITRATE IV DRIP 240 MG PO
     Route: 048
     Dates: start: 20070803, end: 20070803
  2. DILTIAZEM [Suspect]
     Indication: ATRIAL FIBRILLATION
     Dosage: TITRATE IV DRIP 240 MG PO
     Route: 048
     Dates: start: 20070803, end: 20070809

REACTIONS (2)
  - ANURIA [None]
  - BLOOD CREATININE INCREASED [None]
